FAERS Safety Report 11036547 (Version 1)
Quarter: 2015Q2

REPORT INFORMATION
  Report Type: Report from Study
  Country: CA (occurrence: CA)
  Receive Date: 20150416
  Receipt Date: 20150416
  Transmission Date: 20150821
  Serious: Yes (Other)
  Sender: FDA-Public Use
  Company Number: CA-ROCHE-1168199

PATIENT
  Age: 58 Year
  Sex: Female
  Weight: 106 kg

DRUGS (8)
  1. FOLIC ACID. [Concomitant]
     Active Substance: FOLIC ACID
  2. CELEBREX [Concomitant]
     Active Substance: CELECOXIB
  3. ACTEMRA [Suspect]
     Active Substance: TOCILIZUMAB
     Indication: RHEUMATOID ARTHRITIS
     Dosage: 1ST INFUSION
     Route: 042
     Dates: start: 20120329
  4. ACTEMRA [Suspect]
     Active Substance: TOCILIZUMAB
     Dosage: LAST INFUSION WAS ON 16/JUN/2014.
     Route: 042
     Dates: start: 20130429, end: 20150317
  5. ACTEMRA [Suspect]
     Active Substance: TOCILIZUMAB
     Dosage: 2ND INFUSION
     Route: 042
     Dates: start: 20120427
  6. CORTISONE [Concomitant]
     Active Substance: CORTISONE\HYDROCORTISONE
     Dosage: LAST DOSE IN AUG/2011
     Route: 065
  7. VENLAFAXINE [Concomitant]
     Active Substance: VENLAFAXINE HYDROCHLORIDE
     Indication: MENOPAUSE
  8. SYNTHROID [Concomitant]
     Active Substance: LEVOTHYROXINE SODIUM

REACTIONS (4)
  - Blood glucose increased [Unknown]
  - Hepatic enzyme increased [Recovering/Resolving]
  - Weight increased [Not Recovered/Not Resolved]
  - Alanine aminotransferase increased [Recovering/Resolving]

NARRATIVE: CASE EVENT DATE: 20131008
